FAERS Safety Report 17201203 (Version 2)
Quarter: 2020Q1

REPORT INFORMATION
  Report Type: Report from Study
  Country: KR (occurrence: KR)
  Receive Date: 20191226
  Receipt Date: 20200113
  Transmission Date: 20200409
  Serious: Yes (Other)
  Sender: FDA-Public Use
  Company Number: NVSC2019KR060337

PATIENT
  Age: 52 Year
  Sex: Female

DRUGS (16)
  1. SIGNIFOR LAR [Suspect]
     Active Substance: PASIREOTIDE PAMOATE
     Indication: ACROMEGALY
     Dosage: 40 MG
     Route: 030
     Dates: start: 20190515
  2. SIGNIFOR LAR [Suspect]
     Active Substance: PASIREOTIDE PAMOATE
     Dosage: 40 MG
     Route: 030
     Dates: start: 20190710
  3. TROPHERINE [Concomitant]
     Indication: RETINAL DISORDER
     Dosage: UNK
     Route: 065
     Dates: start: 20190822
  4. GLUCOPHAGE [Concomitant]
     Active Substance: METFORMIN HYDROCHLORIDE
     Indication: DIABETES MELLITUS
     Dosage: 1000 MG
     Route: 048
     Dates: start: 20181031
  5. NESINA [Concomitant]
     Active Substance: ALOGLIPTIN BENZOATE
     Indication: DIABETES MELLITUS
     Dosage: 25 MG
     Route: 048
     Dates: start: 20170321
  6. SOLONDO [Concomitant]
     Active Substance: PREDNISOLONE
     Indication: PITUITARY TUMOUR BENIGN
     Dosage: 5 MG
     Route: 048
     Dates: start: 20180710
  7. SYNTHROID [Concomitant]
     Active Substance: LEVOTHYROXINE SODIUM
     Indication: PROPHYLAXIS
     Dosage: 0.05 MG
     Route: 048
     Dates: start: 20180820
  8. SIGNIFOR LAR [Suspect]
     Active Substance: PASIREOTIDE PAMOATE
     Dosage: 40 MG
     Route: 030
     Dates: start: 20190807
  9. SEVIKAR HCT [Concomitant]
     Active Substance: AMLODIPINE BESYLATE\HYDROCHLOROTHIAZIDE\OLMESARTAN MEDOXOMIL
     Indication: HYPERTENSION
     Dosage: 10/40/12.5 MG
     Route: 048
     Dates: start: 20141029
  10. GCFLU [Concomitant]
     Indication: PROPHYLAXIS
     Dosage: 0.5 ML
     Route: 030
     Dates: start: 20191001, end: 20191001
  11. SIGNIFOR LAR [Suspect]
     Active Substance: PASIREOTIDE PAMOATE
     Dosage: 40 MG
     Route: 030
     Dates: start: 20190612
  12. SIGNIFOR LAR [Suspect]
     Active Substance: PASIREOTIDE PAMOATE
     Dosage: 40 MG
     Route: 030
     Dates: start: 20191001
  13. SIGNIFOR LAR [Suspect]
     Active Substance: PASIREOTIDE PAMOATE
     Dosage: 40 MG
     Route: 030
     Dates: start: 20191029
  14. AMARYL [Concomitant]
     Active Substance: GLIMEPIRIDE
     Indication: DIABETES MELLITUS
     Dosage: 3 MG
     Route: 048
     Dates: start: 20190123
  15. CAVERLACTIN [Concomitant]
     Indication: PROPHYLAXIS
     Dosage: 1 MG
     Route: 048
     Dates: start: 20180710
  16. SIGNIFOR LAR [Suspect]
     Active Substance: PASIREOTIDE PAMOATE
     Dosage: 40 MG
     Route: 030
     Dates: start: 20190903

REACTIONS (2)
  - Urinary retention [Not Recovered/Not Resolved]
  - Hyperglycaemia [Recovered/Resolved]

NARRATIVE: CASE EVENT DATE: 20190903
